FAERS Safety Report 4307543-X (Version None)
Quarter: 2004Q1

REPORT INFORMATION
  Report Type: 
  Country: None (occurrence: None)
  Receive Date: 20040226
  Receipt Date: 20040213
  Transmission Date: 20041129
  Serious: Yes (Death, Hospitalization)
  Sender: FDA-Public Use
  Company Number: 2004-DE-00740GD

PATIENT
  Age: 36 Year
  Sex: Male

DRUGS (2)
  1. LOPERAMIDE HCL [Suspect]
     Indication: DIARRHOEA
     Dosage: 6 MG (NR), NR
  2. CLOZAPINE [Suspect]
     Indication: PSYCHOTIC DISORDER
     Dosage: 500 MG (NR), NR

REACTIONS (4)
  - FOOD POISONING [None]
  - GASTROENTERITIS [None]
  - GASTROENTERITIS BACILLUS [None]
  - TOXIC DILATATION OF COLON [None]
